FAERS Safety Report 9693874 (Version 2)
Quarter: 2013Q4

REPORT INFORMATION
  Report Type: Spontaneous
  Country: IT (occurrence: None)
  Receive Date: 20131114
  Receipt Date: 20131217
  Transmission Date: 20140711
  Serious: Yes (Other)
  Sender: FDA-Public Use
  Company Number: 1999130

PATIENT
  Age: 38 Year
  Sex: Female

DRUGS (1)
  1. PACLITAXEL [Suspect]
     Indication: BREAST CANCER
     Dosage: CYCLICAL
     Route: 040
     Dates: start: 20131024, end: 20131024

REACTIONS (4)
  - Abdominal distension [None]
  - Erythema [None]
  - Malaise [None]
  - Infusion related reaction [None]
